FAERS Safety Report 4453403-3 (Version None)
Quarter: 2004Q3

REPORT INFORMATION
  Report Type: 
  Country: None (occurrence: None)
  Receive Date: 20040901
  Receipt Date: 20040510
  Transmission Date: 20050211
  Serious: Yes (Death, Hospitalization)
  Sender: FDA-Public Use
  Company Number: US075258

PATIENT
  Sex: Female
  Weight: 60.4 kg

DRUGS (7)
  1. ENBREL [Suspect]
     Indication: RHEUMATOID ARTHRITIS
     Dosage: 25, 2 IN 1 WEEKS, SC
     Route: 058
     Dates: start: 19981217, end: 20040101
  2. DICLOFENAC SODIUM AND MISOPROSTOL [Concomitant]
  3. ACETAMINOPHEN [Concomitant]
  4. SIMVASTATIN [Concomitant]
  5. LOSARTAN POTASSIUM [Concomitant]
  6. HYDROCHLLOROTHIAZIDE [Concomitant]
  7. EXCEDRIN (MIGRAINE) [Concomitant]

REACTIONS (2)
  - SEPSIS [None]
  - STAPHYLOCOCCAL INFECTION [None]
